FAERS Safety Report 6816072-0 (Version None)
Quarter: 2010Q3

REPORT INFORMATION
  Report Type: 
  Country: None (occurrence: None)
  Receive Date: 20100705
  Receipt Date: 20100629
  Transmission Date: 20110219
  Serious: No
  Sender: FDA-Public Use
  Company Number: US-BIOGENIDEC-2010BI021691

PATIENT
  Age: 58 Year
  Sex: Female

DRUGS (2)
  1. AVONEX [Suspect]
     Indication: MULTIPLE SCLEROSIS
     Route: 030
     Dates: start: 19970901, end: 19980301
  2. AVONEX [Suspect]
     Route: 030
     Dates: start: 20030830

REACTIONS (3)
  - BACK PAIN [None]
  - FALL [None]
  - MEMORY IMPAIRMENT [None]
